FAERS Safety Report 7152649-3 (Version None)
Quarter: 2010Q4

REPORT INFORMATION
  Report Type: 
  Country: None (occurrence: None)
  Receive Date: 20101213
  Receipt Date: 20101202
  Transmission Date: 20110411
  Serious: Yes (Hospitalization)
  Sender: FDA-Public Use
  Company Number: US-JNJFOC-20101201952

PATIENT
  Sex: Female
  Weight: 56.7 kg

DRUGS (2)
  1. REMICADE [Suspect]
     Indication: CROHN'S DISEASE
     Route: 042
  2. CITALOPRAM [Concomitant]
     Indication: ANXIETY
     Route: 048

REACTIONS (7)
  - ABNORMAL LOSS OF WEIGHT [None]
  - BURNING SENSATION [None]
  - CROHN'S DISEASE [None]
  - DRUG EFFECT DECREASED [None]
  - PANCREATIC CYST [None]
  - RASH MACULAR [None]
  - URTICARIA [None]
